FAERS Safety Report 8923551 (Version 1)
Quarter: 2012Q4

REPORT INFORMATION
  Report Type: 
  Country: SE (occurrence: SE)
  Receive Date: 20121123
  Receipt Date: 20121123
  Transmission Date: 20130627
  Serious: Yes (Death, Life-Threatening)
  Sender: FDA-Public Use
  Company Number: SE-PFIZER INC-2012290624

PATIENT
  Age: 71 Year
  Sex: Female

DRUGS (15)
  1. MORFIN MEDA [Concomitant]
     Dosage: 10 mg, unknown frequency
  2. DOLCONTIN [Concomitant]
     Dosage: UNK
  3. KETOGAN NOVUM [Concomitant]
     Dosage: UNK
  4. CYKLOKAPRON [Suspect]
     Dosage: 40 ml, 1x/day
     Route: 042
     Dates: start: 20120810, end: 20120813
  5. CYKLOKAPRON [Suspect]
     Dosage: 3 g, 1x/day
     Route: 048
     Dates: start: 20120813, end: 20120816
  6. NEXIUM [Concomitant]
     Dosage: UNK
  7. PRIMPERAN [Concomitant]
     Dosage: UNK
  8. MOVICOL [Concomitant]
     Dosage: UNK
  9. OMEPRAZOL [Concomitant]
     Dosage: UNK
  10. MIDAZOLAM ACCORD [Concomitant]
     Dosage: UNK
  11. ROBINUL [Concomitant]
     Dosage: UNK
  12. HALDOL [Concomitant]
     Dosage: UNK
  13. PANODIL [Concomitant]
     Dosage: UNK
  14. BETAPRED [Concomitant]
     Dosage: UNK
  15. COCILLANA-ETYFIN [Concomitant]
     Dosage: UNK

REACTIONS (1)
  - Cerebral infarction [Fatal]
